FAERS Safety Report 8947699 (Version 2)
Quarter: 2012Q4

REPORT INFORMATION
  Report Type: 
  Country: FR (occurrence: FR)
  Receive Date: 20121205
  Receipt Date: 20121212
  Transmission Date: 20130627
  Serious: Yes (Hospitalization)
  Sender: FDA-Public Use
  Company Number: PHHY2012FR111296

PATIENT
  Age: 63 Year
  Sex: Female

DRUGS (9)
  1. ZARZIO [Suspect]
     Indication: APLASIA
     Route: 058
     Dates: start: 20121001, end: 20121005
  2. 5 FLUORO URACIL [Concomitant]
     Indication: BREAST CANCER
     Dosage: 900 mg once every 21 days
     Route: 042
     Dates: start: 20120908
  3. EPIRRUBICIN [Concomitant]
     Indication: BREAST CANCER
     Dosage: 175 mg, once every 21 days
     Route: 042
     Dates: start: 20120908
  4. ENDOXAN [Concomitant]
     Indication: BREAST CANCER
     Dosage: 900 mg, once every 21 days
     Route: 042
     Dates: start: 20120908
  5. ATENOLOL [Concomitant]
  6. CRESTOR [Concomitant]
  7. XANAX [Concomitant]
  8. EFEXOR [Concomitant]
  9. ARANESP [Concomitant]
     Dates: start: 201209

REACTIONS (8)
  - Pulmonary embolism [Recovered/Resolved]
  - Dyspnoea [Recovered/Resolved]
  - Cough [Recovered/Resolved]
  - Respiratory disorder [Recovered/Resolved]
  - Chest pain [Unknown]
  - Chest discomfort [Recovered/Resolved]
  - Erythema [Recovered/Resolved]
  - Diarrhoea [Recovered/Resolved]
